FAERS Safety Report 18851969 (Version 1)
Quarter: 2021Q1

REPORT INFORMATION
  Report Type: Spontaneous
  Country: CA (occurrence: CA)
  Receive Date: 20210205
  Receipt Date: 20210205
  Transmission Date: 20210420
  Serious: Yes (Other)
  Sender: FDA-Public Use
  Company Number: CA-JNJFOC-20210148137

PATIENT
  Age: 49 Year
  Sex: Female
  Weight: 109 kg

DRUGS (8)
  1. NABILONE [Concomitant]
     Active Substance: NABILONE
  2. LOSARTAN. [Concomitant]
     Active Substance: LOSARTAN
  3. REMICADE [Concomitant]
     Active Substance: INFLIXIMAB
  4. NALTREXONE [Concomitant]
     Active Substance: NALTREXONE
     Indication: WEIGHT DECREASED
  5. ESCITALOPRAM [Concomitant]
     Active Substance: ESCITALOPRAM OXALATE
  6. INFLIXIMAB, RECOMBINANT [Suspect]
     Active Substance: INFLIXIMAB
     Indication: CROHN^S DISEASE
     Route: 042
  7. BUPROPION. [Concomitant]
     Active Substance: BUPROPION
     Indication: WEIGHT DECREASED
  8. PANTOPRAZOLE MAGNESIUM [Concomitant]
     Active Substance: PANTOPRAZOLE MAGNESIUM
     Route: 048

REACTIONS (5)
  - Colitis ulcerative [Unknown]
  - Off label use [Unknown]
  - Intentional product use issue [Unknown]
  - Arthralgia [Unknown]
  - Blood pressure fluctuation [Unknown]
